FAERS Safety Report 15316689 (Version 1)
Quarter: 2018Q3

REPORT INFORMATION
  Report Type: Spontaneous
  Country: FR (occurrence: FR)
  Receive Date: 20180824
  Receipt Date: 20180824
  Transmission Date: 20181010
  Serious: Yes (Hospitalization, Other)
  Sender: FDA-Public Use
  Company Number: FR-SA-2018SA009788

PATIENT
  Age: 76 Year
  Sex: Male
  Weight: 80 kg

DRUGS (2)
  1. IMMUCYST [Suspect]
     Active Substance: BACILLUS CALMETTE-GUERIN SUBSTRAIN CONNAUGHT LIVE ANTIGEN
     Indication: BLADDER NEOPLASM
     Dosage: 81 MG,UNK
     Route: 043
     Dates: start: 20171019, end: 20171019
  2. IMMUCYST [Suspect]
     Active Substance: BACILLUS CALMETTE-GUERIN SUBSTRAIN CONNAUGHT LIVE ANTIGEN
     Dosage: 81 MG,UNK
     Route: 043
     Dates: start: 20171116, end: 20171116

REACTIONS (2)
  - Hepatitis [Recovered/Resolved]
  - Disseminated tuberculosis [Recovered/Resolved]

NARRATIVE: CASE EVENT DATE: 20171116
